FAERS Safety Report 5127236-9 (Version None)
Quarter: 2006Q4

REPORT INFORMATION
  Report Type: 
  Country: None (occurrence: None)
  Receive Date: 20061010
  Receipt Date: 20061003
  Transmission Date: 20070319
  Serious: Yes (Hospitalization, Disabling, Other)
  Sender: FDA-Public Use
  Company Number: 2006-07-1989

PATIENT
  Age: 58 Year
  Sex: Female
  Weight: 78.9259 kg

DRUGS (9)
  1. PEG-INTRON [Suspect]
     Indication: HEPATITIS C
     Dosage: 120 MCG, QW; SC
     Route: 058
     Dates: start: 20060505
  2. RIBAVIRIN [Suspect]
     Indication: HEPATITIS C
     Dosage: (SEE IMAGE)
     Route: 048
     Dates: start: 20060505
  3. RIBAVIRIN [Suspect]
     Indication: HEPATITIS C
     Dosage: (SEE IMAGE)
     Route: 048
     Dates: start: 20060801
  4. PREDNISONE TAB [Suspect]
     Indication: PNEUMONIA
     Dosage: UNK
     Dates: start: 20060701
  5. OPHTHALMIC PREPARATION (NOS) [Suspect]
     Indication: CONJUNCTIVITIS
     Dosage: OPH
     Route: 047
     Dates: start: 20060701
  6. LASIX [Concomitant]
  7. ESZOPICLONE [Concomitant]
  8. METHADONE HYDROCHLORIDE [Concomitant]
  9. PROVIGIL [Concomitant]

REACTIONS (29)
  - ANOREXIA [None]
  - ASTHENIA [None]
  - ASTHMA [None]
  - BLOOD ALBUMIN DECREASED [None]
  - CHOKING [None]
  - CONJUNCTIVITIS [None]
  - DECREASED IMMUNE RESPONSIVENESS [None]
  - DEHYDRATION [None]
  - DEPRESSION [None]
  - DRUG HYPERSENSITIVITY [None]
  - DRY SKIN [None]
  - DYSGEUSIA [None]
  - DYSPNOEA [None]
  - EYELID OEDEMA [None]
  - FEELING OF DESPAIR [None]
  - FUNGAL SKIN INFECTION [None]
  - HAEMOGLOBIN DECREASED [None]
  - INJECTION SITE RASH [None]
  - MANIA [None]
  - NAUSEA [None]
  - NEUTROPHIL COUNT DECREASED [None]
  - ORAL CANDIDIASIS [None]
  - PNEUMONIA [None]
  - RESPIRATORY TRACT INFECTION [None]
  - SELF-MEDICATION [None]
  - SKIN EXFOLIATION [None]
  - SWELLING FACE [None]
  - WEIGHT DECREASED [None]
  - WHITE BLOOD CELL COUNT DECREASED [None]
